FAERS Safety Report 7200846-0 (Version None)
Quarter: 2010Q4

REPORT INFORMATION
  Report Type: 
  Country: None (occurrence: None)
  Receive Date: 20101228
  Receipt Date: 20101216
  Transmission Date: 20110411
  Serious: Yes (Other)
  Sender: FDA-Public Use
  Company Number: AU-PFIZER INC-2010175104

PATIENT
  Age: 66 Year
  Sex: Female

DRUGS (4)
  1. LYRICA [Suspect]
     Dosage: 75 MG, 2X/DAY
  2. AVAPRO [Concomitant]
     Dosage: UNK
  3. OXYCONTIN [Concomitant]
     Dosage: UNK
  4. NOTEN [Concomitant]
     Dosage: UNK

REACTIONS (4)
  - EYE SWELLING [None]
  - FACIAL PAIN [None]
  - RASH [None]
  - RASH ERYTHEMATOUS [None]
